FAERS Safety Report 6890046-6 (Version None)
Quarter: 2010Q3

REPORT INFORMATION
  Report Type: 
  Country: None (occurrence: None)
  Receive Date: 20100730
  Receipt Date: 20080729
  Transmission Date: 20110219
  Serious: No
  Sender: FDA-Public Use
  Company Number: US-PFIZER INC-2008063477

PATIENT
  Sex: Female
  Weight: 58.636 kg

DRUGS (2)
  1. LIPITOR [Suspect]
     Indication: CARDIOVASCULAR EVENT PROPHYLAXIS
     Dates: start: 20080725
  2. METOPROLOL TARTRATE [Concomitant]

REACTIONS (3)
  - MOTOR DYSFUNCTION [None]
  - PAIN [None]
  - PARAESTHESIA [None]
